FAERS Safety Report 5101079-4 (Version None)
Quarter: 2006Q3

REPORT INFORMATION
  Report Type: 
  Country: None (occurrence: None)
  Receive Date: 20060911
  Receipt Date: 20060719
  Transmission Date: 20061208
  Serious: Yes (Hospitalization, Other)
  Sender: FDA-Public Use
  Company Number: FRWYE278320JUL06

PATIENT
  Sex: Male

DRUGS (19)
  1. ENBREL [Suspect]
     Indication: JUVENILE ARTHRITIS
     Route: 058
     Dates: start: 20060707, end: 20060716
  2. LASILIX [Concomitant]
     Dates: start: 20060704, end: 20060717
  3. LASILIX [Concomitant]
     Dates: start: 20060701
  4. SOTALOL HCL [Concomitant]
     Dates: start: 20060704, end: 20060717
  5. SOTALOL HCL [Concomitant]
     Dates: start: 20060701
  6. SKENAN [Concomitant]
     Dates: start: 20060704, end: 20060717
  7. SKENAN [Concomitant]
     Dates: start: 20060701
  8. LOVENOX [Concomitant]
     Dates: start: 20060704
  9. MORPHINE SULFATE [Concomitant]
  10. COLCHIMAX [Concomitant]
  11. CORTANCYL [Concomitant]
  12. MOPRAL [Concomitant]
  13. OROCAL [Concomitant]
  14. VITAMIN D3 [Concomitant]
  15. ASPIRIN [Concomitant]
  16. MYOLASTAN [Concomitant]
     Dates: end: 20060717
  17. MYOLASTAN [Concomitant]
     Dates: start: 20060701
  18. STILNOX [Concomitant]
     Dates: end: 20060717
  19. STILNOX [Concomitant]
     Dates: start: 20060701

REACTIONS (4)
  - DRUG INEFFECTIVE [None]
  - HYPOTENSION [None]
  - MALAISE [None]
  - TACHYCARDIA [None]
